FAERS Safety Report 4484791-X (Version None)
Quarter: 2004Q4

REPORT INFORMATION
  Report Type: 
  Country: None (occurrence: None)
  Receive Date: 20041025
  Receipt Date: 20041012
  Transmission Date: 20050328
  Serious: Yes (Other)
  Sender: FDA-Public Use
  Company Number: US-MERCK-0410USA01837

PATIENT
  Age: 73 Year
  Sex: Female

DRUGS (13)
  1. VIOXX [Suspect]
     Indication: ARTHRITIS
     Route: 048
  2. GLYBURIDE [Concomitant]
     Route: 065
  3. PRINIVIL [Concomitant]
     Route: 048
  4. PRAVACHOL [Concomitant]
     Route: 065
  5. TOPROL-XL [Concomitant]
     Route: 065
  6. LASIX [Concomitant]
     Route: 065
  7. CLONIDINE [Concomitant]
     Route: 065
  8. ALLEGRA [Concomitant]
     Route: 065
  9. SINGULAIR [Concomitant]
     Route: 048
  10. TETRACYCLINE [Concomitant]
     Route: 065
  11. KLOR-CON [Concomitant]
     Route: 065
  12. NEXIUM [Concomitant]
     Route: 065
  13. [THERAPY UNSPECIFIED] [Concomitant]
     Indication: ARTHRITIS
     Route: 065

REACTIONS (1)
  - CEREBROVASCULAR ACCIDENT [None]
